FAERS Safety Report 10142550 (Version 1)
Quarter: 2014Q2

REPORT INFORMATION
  Report Type: Spontaneous
  Country: US (occurrence: US)
  Receive Date: 20140430
  Receipt Date: 20140430
  Transmission Date: 20141212
  Serious: Yes (Hospitalization)
  Sender: FDA-Public Use
  Company Number: US-BRISTOL-MYERS SQUIBB COMPANY-20663290

PATIENT
  Age: 23 Year
  Sex: Female
  Weight: 56.69 kg

DRUGS (4)
  1. ABILIFY [Suspect]
     Indication: BIPOLAR DISORDER
     Dates: start: 2006
  2. DEPAKOTE [Suspect]
     Indication: BIPOLAR DISORDER
     Dosage: STRENGTH: 500MG TABS?DURATION: 2002-2002?          2006-2006
     Dates: start: 2006, end: 2006
  3. ZYPREXA [Suspect]
  4. METFORMIN [Concomitant]

REACTIONS (4)
  - Mania [Recovered/Resolved]
  - Alopecia [Recovered/Resolved]
  - Aphasia [Recovered/Resolved]
  - Weight increased [Recovered/Resolved]
